FAERS Safety Report 7786035-X (Version None)
Quarter: 2011Q3

REPORT INFORMATION
  Report Type: 
  Country: None (occurrence: None)
  Receive Date: 20110929
  Receipt Date: 20110920
  Transmission Date: 20111222
  Serious: Yes (Other)
  Sender: FDA-Public Use
  Company Number: NL-BAXTER-2011BH023102

PATIENT
  Age: 48 Year
  Sex: Female

DRUGS (4)
  1. GAMMAGARD LIQUID [Suspect]
     Indication: IMMUNODEFICIENCY COMMON VARIABLE
     Route: 042
     Dates: start: 20110127
  2. GAMMAGARD LIQUID [Suspect]
     Route: 042
     Dates: start: 20110713
  3. GAMMAGARD LIQUID [Suspect]
     Route: 042
     Dates: start: 20110615
  4. STOMACH PROTECTOR-AGENT [Concomitant]
     Indication: PROPHYLAXIS
     Route: 065

REACTIONS (5)
  - NAUSEA [None]
  - SOMNOLENCE [None]
  - PALLOR [None]
  - MALAISE [None]
  - SYNCOPE [None]
